FAERS Safety Report 24883535 (Version 2)
Quarter: 2025Q1

REPORT INFORMATION
  Report Type: Spontaneous
  Country: US (occurrence: US)
  Receive Date: 20250124
  Receipt Date: 20250124
  Transmission Date: 20250409
  Serious: Yes (Death, Other)
  Sender: GILEAD
  Company Number: US-GILEAD-2025-0701024

PATIENT
  Age: 64 Year
  Sex: Male

DRUGS (1)
  1. VEKLURY [Suspect]
     Active Substance: REMDESIVIR
     Indication: Coronavirus infection
     Route: 065
     Dates: start: 20211128

REACTIONS (6)
  - Death [Fatal]
  - Myocardial infarction [Unknown]
  - Thrombosis [Unknown]
  - Pneumonia [Unknown]
  - Renal failure [Unknown]
  - COVID-19 [Unknown]

NARRATIVE: CASE EVENT DATE: 20211208
